FAERS Safety Report 22216885 (Version 2)
Quarter: 2023Q2

REPORT INFORMATION
  Report Type: Spontaneous
  Country: US (occurrence: CA)
  Receive Date: 20230417
  Receipt Date: 20230418
  Transmission Date: 20230721
  Serious: No
  Sender: FDA-Public Use
  Company Number: US-VIIV HEALTHCARE LIMITED-CA2023AMR051231

PATIENT
  Age: 25 Year
  Sex: Male

DRUGS (2)
  1. RILPIVIRINE [Suspect]
     Active Substance: RILPIVIRINE
     Indication: HIV infection
     Dosage: UNK, MO 400MG/2ML CABOTEGRAVIR, 600MG/3ML RILPIVIRINE
     Route: 030
     Dates: start: 20221213
  2. CABOTEGRAVIR [Suspect]
     Active Substance: CABOTEGRAVIR
     Indication: HIV infection
     Dosage: UNK, MO 400MG/2ML CABOTEGRAVIR, 600MG/3ML RILPIVIRINE
     Route: 030
     Dates: start: 20221213

REACTIONS (3)
  - Pyrexia [Not Recovered/Not Resolved]
  - Lethargy [Not Recovered/Not Resolved]
  - Decreased appetite [Not Recovered/Not Resolved]
